FAERS Safety Report 22085436 (Version 1)
Quarter: 2023Q1

REPORT INFORMATION
  Report Type: Spontaneous
  Country: US (occurrence: None)
  Receive Date: 20230310
  Receipt Date: 20230310
  Transmission Date: 20230418
  Serious: Yes (Hospitalization, Disabling)
  Sender: FDA-Public Use
  Company Number: None

PATIENT
  Sex: Male
  Weight: 77.85 kg

DRUGS (2)
  1. MOXIFLOXACIN [Suspect]
     Active Substance: MOXIFLOXACIN
     Indication: Epididymitis ureaplasmal
     Dosage: OTHER QUANTITY : 1 TABLET(S);?FREQUENCY : DAILY;?
     Route: 048
     Dates: start: 20230301, end: 20230303
  2. MOXIFLOXACIN [Suspect]
     Active Substance: MOXIFLOXACIN
     Indication: Orchitis

REACTIONS (23)
  - Myalgia [None]
  - Pain [None]
  - Muscle spasms [None]
  - Hypoaesthesia [None]
  - Hyperhidrosis [None]
  - Feeling hot [None]
  - Pain [None]
  - Paraesthesia [None]
  - Neuropathy peripheral [None]
  - Gait disturbance [None]
  - Arthropathy [None]
  - Tendon disorder [None]
  - Headache [None]
  - Head discomfort [None]
  - Ear discomfort [None]
  - Vision blurred [None]
  - Feeling abnormal [None]
  - Disturbance in attention [None]
  - Asthenia [None]
  - Asthenia [None]
  - Loss of libido [None]
  - Testicular atrophy [None]
  - Male genital atrophy [None]
